FAERS Safety Report 23742921 (Version 1)
Quarter: 2024Q2

REPORT INFORMATION
  Report Type: Spontaneous
  Country: US (occurrence: US)
  Receive Date: 20240415
  Receipt Date: 20240415
  Transmission Date: 20240715
  Serious: Yes (Hospitalization)
  Sender: FDA-Public Use
  Company Number: US-INCYTE CORPORATION-2024IN003736

PATIENT

DRUGS (1)
  1. JAKAFI [Suspect]
     Active Substance: RUXOLITINIB
     Indication: Graft versus host disease
     Dosage: TAKE ONE AND ONE--HALF TABLETS (7.5MG) TWICE DAILY
     Route: 048
     Dates: start: 202305

REACTIONS (6)
  - COVID-19 [Recovering/Resolving]
  - Rhinovirus infection [Recovering/Resolving]
  - Inflammation [Recovering/Resolving]
  - Drug ineffective [Unknown]
  - Wrong technique in product usage process [Unknown]
  - Off label use [Unknown]

NARRATIVE: CASE EVENT DATE: 20230501
